FAERS Safety Report 16559673 (Version 5)
Quarter: 2019Q4

REPORT INFORMATION
  Report Type: Spontaneous
  Country: US (occurrence: US)
  Receive Date: 20190711
  Receipt Date: 20191126
  Transmission Date: 20200122
  Serious: No
  Sender: FDA-Public Use
  Company Number: US-PFIZER INC-2019292306

PATIENT
  Age: 61 Year
  Sex: Female
  Weight: 75.74 kg

DRUGS (43)
  1. BUSPIRONE [Concomitant]
     Active Substance: BUSPIRONE HYDROCHLORIDE
     Dosage: 10 MG, 3X/DAY
  2. ABATACEPT [Concomitant]
     Active Substance: ABATACEPT
     Dosage: 125 MG, WEEKLY
     Dates: end: 20190519
  3. CAFFEINE. [Concomitant]
     Active Substance: CAFFEINE
     Dosage: 200 MG, 1X/DAY
  4. OPTIMIZED FOLATE [Concomitant]
     Dosage: 1000 UG, 1X/DAY
  5. LICORICE ROOT [Concomitant]
     Active Substance: LICORICE
     Dosage: 600 MG, DAILY (300MG; 2 AT NOON)
  6. XELJANZ XR [Suspect]
     Active Substance: TOFACITINIB CITRATE
     Dosage: 11 MG, DAILY
     Route: 048
     Dates: start: 2019, end: 2019
  7. XELJANZ XR [Suspect]
     Active Substance: TOFACITINIB CITRATE
     Dosage: 11 MG, 1X/DAY
     Route: 048
     Dates: start: 2019, end: 2019
  8. METHOTREXATE. [Concomitant]
     Active Substance: METHOTREXATE
     Dosage: 17.5 MG, WEEKLY
     Dates: start: 20190630
  9. DICLOFENAC [Concomitant]
     Active Substance: DICLOFENAC
     Dosage: 1 %, AS NEEDED
  10. MELOXICAM. [Concomitant]
     Active Substance: MELOXICAM
     Dosage: 15 MG, 1X/DAY
     Dates: start: 20181107, end: 20190203
  11. METHOCARBAMOL. [Concomitant]
     Active Substance: METHOCARBAMOL
     Dosage: 750 MG, AS NEEDED (L-3XD )
  12. FLUTICASONE. [Concomitant]
     Active Substance: FLUTICASONE
     Dosage: 50 UG, UNK (SPRAY/LEAC H LXD)
  13. PHENTERMINE. [Concomitant]
     Active Substance: PHENTERMINE
     Dosage: 37.5 MG, UNK (1/2-1XD)
     Dates: start: 20190207
  14. UBIQUINOL CO Q10 [Concomitant]
     Dosage: 400 MG, 1X/DAY
  15. XELJANZ XR [Suspect]
     Active Substance: TOFACITINIB CITRATE
     Indication: RHEUMATOID ARTHRITIS
     Dosage: 11 MG, 1X/DAY
     Route: 048
     Dates: start: 20190606
  16. XELJANZ XR [Suspect]
     Active Substance: TOFACITINIB CITRATE
     Dosage: 11 MG, 1X/DAY
     Dates: start: 20190705, end: 2019
  17. TRAZODONE [Concomitant]
     Active Substance: TRAZODONE HYDROCHLORIDE
     Dosage: 150 MG, 1X/DAY (1 AT NIGHT)
  18. MYRBETRIQ [Concomitant]
     Active Substance: MIRABEGRON
     Dosage: 25 MG, 1X/DAY (1 AT NIGHT)
  19. XELJANZ XR [Suspect]
     Active Substance: TOFACITINIB CITRATE
     Dosage: 11 MG, 1X/DAY
     Dates: start: 20190627, end: 20190630
  20. POTASSIUM CHLORIDE. [Concomitant]
     Active Substance: POTASSIUM CHLORIDE
     Dosage: 10 MEQ, 1X/DAY
  21. KERYDIN [Concomitant]
     Active Substance: TAVABOROLE
     Dosage: 5 %, 1X/DAY
     Route: 061
  22. VITAMIN B12 [Concomitant]
     Active Substance: CYANOCOBALAMIN
     Indication: NEUROPATHY PERIPHERAL
     Dosage: 600 UG, AS NEEDED
  23. MIRALAX [Concomitant]
     Active Substance: POLYETHYLENE GLYCOL 3350
     Dosage: 1X/DAY (3 TBSP; 1XD)
  24. HYDROXYCHLOROQUINE [Concomitant]
     Active Substance: HYDROXYCHLOROQUINE
     Dosage: 200 MG, 2X/DAY
     Dates: start: 20160419
  25. LISINOPRIL. [Concomitant]
     Active Substance: LISINOPRIL
     Dosage: UNK
     Dates: start: 20190219
  26. CYCLOBENZAPRINE. [Concomitant]
     Active Substance: CYCLOBENZAPRINE
     Dosage: 10 MG, AS NEEDED (1 AT NIGHT)
  27. PHENTERMINE. [Concomitant]
     Active Substance: PHENTERMINE
     Dosage: 37.5 MG, UNK (1/2-1XD)
     Dates: end: 20181107
  28. KONSYL [PSYLLIUM HYDROPHILIC MUCILLOID] [Concomitant]
     Dosage: UNK (40G DIETARY FIBER + 25G SOLUBLE FIBER; 40G; 1XD)
  29. FOLIC ACID. [Concomitant]
     Active Substance: FOLIC ACID
     Dosage: 1 MG, 2X/DAY
     Dates: start: 20160419
  30. HYDROCHLOROTHIAZIDE. [Concomitant]
     Active Substance: HYDROCHLOROTHIAZIDE
     Dosage: 25 MG, 1X/DAY
  31. TESTOSTERONE. [Concomitant]
     Active Substance: TESTOSTERONE
     Dosage: UNK (30MG/15MLS/4 DAYS PER WEEK)
  32. KETOROLAC [Concomitant]
     Active Substance: KETOROLAC TROMETHAMINE
     Dosage: 0.5 %, UNK (2XD-2 WEEKS)
  33. DOCUSATE SODIUM. [Concomitant]
     Active Substance: DOCUSATE SODIUM
     Dosage: 100 MG, 1X/DAY
  34. LISINOPRIL. [Concomitant]
     Active Substance: LISINOPRIL
     Dosage: 20 MG, 1X/DAY
  35. TRAMADOL. [Concomitant]
     Active Substance: TRAMADOL
     Dosage: 50 MG, AS NEEDED (1 AT NIGHT)
  36. MONTELUKAST [Concomitant]
     Active Substance: MONTELUKAST SODIUM
     Dosage: 10 MG, 1X/DAY (AT NIGHT)
  37. ESTRING [Concomitant]
     Active Substance: ESTRADIOL
     Dosage: 2 MG, UNK (1X90 DAYS)
  38. GELATIN [Concomitant]
     Active Substance: GELATIN
     Dosage: 7.2 G, 1X/DAY
  39. VITAMIN D3 [Concomitant]
     Active Substance: CHOLECALCIFEROL
     Dosage: 4000 IU, 2X/DAY
  40. OMEGA 3 FISH OIL [DOCOSAHEXAENOIC ACID;EICOSAPENTAENOIC ACID] [Concomitant]
     Dosage: 1200 MG, 1X/DAY
  41. METHOTREXATE. [Concomitant]
     Active Substance: METHOTREXATE
     Dosage: 17.5 MG, WEEKLY
     Dates: start: 20160727, end: 20190519
  42. MELOXICAM. [Concomitant]
     Active Substance: MELOXICAM
     Dosage: 15 MG, 1X/DAY
     Dates: start: 20190211, end: 20190508
  43. OSPHENA [Concomitant]
     Active Substance: OSPEMIFENE
     Dosage: 60 MG, 1X/DAY
     Dates: end: 20190623

REACTIONS (7)
  - Eye inflammation [Recovered/Resolved]
  - Neuralgia [Unknown]
  - Herpes simplex [Recovered/Resolved]
  - Paraesthesia [Unknown]
  - Disease recurrence [Recovered/Resolved]
  - Muscle spasms [Unknown]
  - Hypoaesthesia [Unknown]

NARRATIVE: CASE EVENT DATE: 20190630
